FAERS Safety Report 14974819 (Version 1)
Quarter: 2018Q2

REPORT INFORMATION
  Report Type: Spontaneous
  Country: AU (occurrence: AU)
  Receive Date: 20180605
  Receipt Date: 20180605
  Transmission Date: 20180711
  Serious: Yes (Other)
  Sender: FDA-Public Use
  Company Number: AU-EYEVANCE PHARMACEUTICALS-2018EYE00001

PATIENT
  Age: 7 Year
  Sex: Male

DRUGS (6)
  1. PREDNISONE. [Concomitant]
     Active Substance: PREDNISONE
  2. CETIRIZINE HYDROCHLORIDE. [Suspect]
     Active Substance: CETIRIZINE HYDROCHLORIDE
     Dosage: THREE DOSES OF 5 MG
     Route: 065
  3. EPADERM [Concomitant]
     Active Substance: MINERAL OIL\PETROLATUM\WAX, EMULSIFYING
     Route: 065
  4. CETIRIZINE HYDROCHLORIDE. [Suspect]
     Active Substance: CETIRIZINE HYDROCHLORIDE
     Indication: PRURITUS
     Dosage: 5 MG, 1X/DAY (EVERY MORNING), OCCASIONALLY 2X.DAY
     Route: 065
  5. HYDROCORTISONE. [Concomitant]
     Active Substance: HYDROCORTISONE
     Route: 065
  6. TRIAMCINOLONE [Concomitant]
     Active Substance: TRIAMCINOLONE
     Route: 065

REACTIONS (15)
  - Tardive dyskinesia [Unknown]
  - Overdose [Recovered/Resolved]
  - Erythema [None]
  - Musculoskeletal stiffness [None]
  - Staphylococcal infection [None]
  - Muscle twitching [None]
  - Lichenoid keratosis [None]
  - Neck pain [None]
  - Tardive dyskinesia [None]
  - Protrusion tongue [None]
  - Dystonia [None]
  - Screaming [None]
  - Dyskinesia [None]
  - Tachycardia [None]
  - Eczema [None]
